FAERS Safety Report 9150132 (Version 1)
Quarter: 2013Q1

REPORT INFORMATION
  Report Type: Spontaneous
  Country: US (occurrence: None)
  Receive Date: 20130131
  Receipt Date: 20130131
  Transmission Date: 20140127
  Serious: No
  Sender: FDA-Public Use
  Company Number: E2B00000484

PATIENT
  Age: 9 Month
  Sex: Female
  Weight: 7.71 kg

DRUGS (2)
  1. FAMOTIDINE [Suspect]
     Indication: GASTROOESOPHAGEAL REFLUX DISEASE
     Route: 048
     Dates: start: 20121120, end: 20121121
  2. PREVACID [Concomitant]

REACTIONS (2)
  - Vomiting [None]
  - Haematemesis [None]
